FAERS Safety Report 12963899 (Version 1)
Quarter: 2016Q4

REPORT INFORMATION
  Report Type: Spontaneous
  Country: US (occurrence: US)
  Receive Date: 20161122
  Receipt Date: 20161122
  Transmission Date: 20170207
  Serious: Yes (Other)
  Sender: FDA-Public Use
  Company Number: US-GLAXOSMITHKLINE-US2016GSK171463

PATIENT
  Sex: Female
  Weight: 86.17 kg

DRUGS (20)
  1. BETASERON [Concomitant]
     Active Substance: INTERFERON BETA-1B
  2. HYDROCHLOROTHIAZIDE. [Concomitant]
     Active Substance: HYDROCHLOROTHIAZIDE
  3. LEVOTHYROXINE. [Concomitant]
     Active Substance: LEVOTHYROXINE
  4. HUMALOG [Concomitant]
     Active Substance: INSULIN LISPRO
  5. PROZAC [Concomitant]
     Active Substance: FLUOXETINE HYDROCHLORIDE
  6. LIPITOR [Concomitant]
     Active Substance: ATORVASTATIN CALCIUM
  7. VASOTEC [Concomitant]
     Active Substance: ENALAPRIL MALEATE
  8. LAMICTAL [Suspect]
     Active Substance: LAMOTRIGINE
     Indication: PRODUCT USED FOR UNKNOWN INDICATION
  9. TECFIDERA [Suspect]
     Active Substance: DIMETHYL FUMARATE
     Indication: MULTIPLE SCLEROSIS
     Dosage: 240 MG, BID
     Dates: start: 2014
  10. LABETALOL [Concomitant]
     Active Substance: LABETALOL\LABETALOL HYDROCHLORIDE
  11. METFORMIN [Suspect]
     Active Substance: METFORMIN HYDROCHLORIDE
     Indication: DIABETES MELLITUS
     Dosage: 1000 MG, UNK
     Route: 048
  12. MOBIC [Concomitant]
     Active Substance: MELOXICAM
  13. LANTUS [Concomitant]
     Active Substance: INSULIN GLARGINE
  14. ATENOLOL. [Concomitant]
     Active Substance: ATENOLOL
  15. TOVIAZ [Concomitant]
     Active Substance: FESOTERODINE FUMARATE
  16. LASIX [Concomitant]
     Active Substance: FUROSEMIDE
  17. LYRICA [Concomitant]
     Active Substance: PREGABALIN
  18. AMPYRA [Suspect]
     Active Substance: DALFAMPRIDINE
     Indication: MULTIPLE SCLEROSIS
     Dosage: 10 MG, BID
     Route: 048
     Dates: end: 201210
  19. CANAGLIFLOZIN [Suspect]
     Active Substance: CANAGLIFLOZIN
     Indication: BLOOD GLUCOSE ABNORMAL
     Dosage: 300 MG, QD
     Route: 048
     Dates: start: 201509
  20. XANAX [Suspect]
     Active Substance: ALPRAZOLAM
     Indication: PRODUCT USED FOR UNKNOWN INDICATION
     Dosage: 0.5 MG, UNK

REACTIONS (22)
  - Skin warm [Unknown]
  - Head injury [Unknown]
  - Gait disturbance [Unknown]
  - Multiple sclerosis relapse [Unknown]
  - Obesity [Unknown]
  - Metabolic surgery [Unknown]
  - Anxiety [Unknown]
  - Fall [Unknown]
  - Burning sensation [Unknown]
  - Erythema [Unknown]
  - Peroneal nerve palsy [Unknown]
  - Walking aid user [Unknown]
  - Depressed mood [Unknown]
  - Muscle spasticity [Unknown]
  - Frustration tolerance decreased [Unknown]
  - Drug ineffective [Unknown]
  - Back injury [Unknown]
  - Blood glucose increased [Unknown]
  - Disorientation [Unknown]
  - Wheelchair user [Unknown]
  - Chest injury [Unknown]
  - Stress [Unknown]
